FAERS Safety Report 9218310 (Version 1)
Quarter: 2013Q2

REPORT INFORMATION
  Report Type: Spontaneous
  Country: US (occurrence: US)
  Receive Date: 20130409
  Receipt Date: 20130409
  Transmission Date: 20140414
  Serious: No
  Sender: FDA-Public Use
  Company Number: US-009507513-1304USA002349

PATIENT
  Sex: Female

DRUGS (1)
  1. PEGINTRON [Suspect]
     Dosage: 120 MICROGRAM, 1 STANDARD DOSE OF 1
     Dates: start: 201302

REACTIONS (2)
  - Drug dose omission [Unknown]
  - Product quality issue [Unknown]
